FAERS Safety Report 7083181-3 (Version None)
Quarter: 2010Q4

REPORT INFORMATION
  Report Type: 
  Country: None (occurrence: None)
  Receive Date: 20101026
  Receipt Date: 20101017
  Transmission Date: 20110411
  Serious: Yes (Hospitalization)
  Sender: FDA-Public Use
  Company Number: 2010EU005463

PATIENT
  Age: 35 Year
  Sex: Female

DRUGS (10)
  1. TACROLIMUS [Suspect]
     Indication: RENAL TRANSPLANT
     Dosage: ORAL
     Route: 048
  2. MYCOPHENOLATE SODIUM (MYCOPHENOLATE SODIUM) [Suspect]
     Indication: RENAL TRANSPLANT
     Dosage: ORAL
     Route: 048
  3. AZATHIOPRINE [Suspect]
     Indication: RENAL TRANSPLANT
     Dosage: ORAL
     Route: 048
  4. BASILIXIMAB (BASILIXIMAB) [Concomitant]
  5. METHYLPREDNISOLONE [Concomitant]
  6. AMLODIPINE [Concomitant]
  7. DOXAZOSIN MESYLATE [Concomitant]
  8. PROPRANOLOL [Concomitant]
  9. MAGNESIUM (ALUMINIUM HYDROXIDE) [Concomitant]
  10. DIPIRIDAMOL (DIPYRIDAMOLE) [Concomitant]

REACTIONS (2)
  - HYPERGLYCAEMIA [None]
  - PERITONITIS SCLEROSING [None]
